FAERS Safety Report 19511127 (Version 5)
Quarter: 2021Q3

REPORT INFORMATION
  Report Type: Spontaneous
  Country: DE (occurrence: DE)
  Receive Date: 20210709
  Receipt Date: 20210818
  Transmission Date: 20211014
  Serious: Yes (Other)
  Sender: FDA-Public Use
  Company Number: DE-ALNYLAM PHARMACEUTICALS, INC.-ALN-2021-001609

PATIENT

DRUGS (3)
  1. ONPATTRO [Suspect]
     Active Substance: PATISIRAN SODIUM
     Indication: AMYLOIDOSIS SENILE
     Dosage: 11 MILLILITER/73KG
     Route: 042
     Dates: start: 20210722
  2. ONPATTRO [Suspect]
     Active Substance: PATISIRAN SODIUM
     Indication: POLYNEUROPATHY
     Dosage: 11 MILLILITER /73KG
     Route: 042
     Dates: start: 20210701
  3. VITAMIN A [Concomitant]
     Active Substance: VITAMIN A
     Indication: PROPHYLAXIS
     Dosage: UNK, QD

REACTIONS (9)
  - Insurance issue [Not Recovered/Not Resolved]
  - Emotional distress [Unknown]
  - Vomiting [Unknown]
  - Walking aid user [Unknown]
  - Gait disturbance [Unknown]
  - Inappropriate schedule of product administration [Recovered/Resolved]
  - Loss of consciousness [Unknown]
  - Blood pressure fluctuation [Unknown]
  - Fall [Unknown]
